FAERS Safety Report 7110960-6 (Version None)
Quarter: 2010Q4

REPORT INFORMATION
  Report Type: 
  Country: None (occurrence: None)
  Receive Date: 20101118
  Receipt Date: 20091016
  Transmission Date: 20110411
  Serious: No
  Sender: FDA-Public Use
  Company Number: US-TEVA-212697USA

PATIENT
  Sex: Female
  Weight: 86.26 kg

DRUGS (2)
  1. ALBUTEROL SULFATE AUTOHALER [Suspect]
     Indication: ASTHMA
     Route: 055
     Dates: start: 20070101, end: 20080801
  2. SERETIDE                           /01420901/ [Concomitant]

REACTIONS (2)
  - DYSGEUSIA [None]
  - THROAT IRRITATION [None]
